FAERS Safety Report 6330432-6 (Version None)
Quarter: 2009Q3

REPORT INFORMATION
  Report Type: 
  Country: None (occurrence: None)
  Receive Date: 20090826
  Receipt Date: 20090826
  Transmission Date: 20100115
  Serious: No
  Sender: FDA-Public Use
  Company Number: None

PATIENT
  Sex: Female

DRUGS (1)
  1. XIBROM [Suspect]
     Dosage: 1 DROP 2 X PER DAY EYE STARTED XIBR ON ON 7.13.09 2X PER DAY CONTINUED USE TILL 7.21.09 WHEN MD D/C
     Dates: start: 20090713, end: 20090721

REACTIONS (2)
  - SCLERAL THINNING [None]
  - WOUND SECRETION [None]
